FAERS Safety Report 10446713 (Version 1)
Quarter: 2014Q3

REPORT INFORMATION
  Report Type: Spontaneous
  Country: US (occurrence: US)
  Receive Date: 20140911
  Receipt Date: 20140911
  Transmission Date: 20150326
  Serious: Yes (Life-Threatening, Hospitalization)
  Sender: FDA-Public Use
  Company Number: US-MYLANLABS-2014M1004185

PATIENT

DRUGS (5)
  1. LEVETIRACETAM. [Suspect]
     Active Substance: LEVETIRACETAM
     Indication: OFF LABEL USE
  2. CYCLOBENZAPRINE [Suspect]
     Active Substance: CYCLOBENZAPRINE
     Indication: OFF LABEL USE
  3. LACOSAMIDE [Suspect]
     Active Substance: LACOSAMIDE
     Indication: INTENTIONAL SELF-INJURY
     Dosage: 4.5G
     Route: 048
  4. CYCLOBENZAPRINE [Suspect]
     Active Substance: CYCLOBENZAPRINE
     Indication: INTENTIONAL SELF-INJURY
     Dosage: 120MG
     Route: 048
  5. LEVETIRACETAM. [Suspect]
     Active Substance: LEVETIRACETAM
     Indication: INTENTIONAL SELF-INJURY
     Route: 048

REACTIONS (4)
  - Intentional overdose [Recovered/Resolved]
  - Cardiac arrest [Recovered/Resolved]
  - Intentional self-injury [Unknown]
  - Electrocardiogram QRS complex prolonged [Recovered/Resolved]
